FAERS Safety Report 5289720-7 (Version None)
Quarter: 2007Q2

REPORT INFORMATION
  Report Type: 
  Country: None (occurrence: None)
  Receive Date: 20070406
  Receipt Date: 20070327
  Transmission Date: 20071010
  Serious: Yes (Hospitalization, Other)
  Sender: FDA-Public Use
  Company Number: US-AMGEN-STX183482

PATIENT
  Sex: Female
  Weight: 50.4 kg

DRUGS (4)
  1. ENBREL [Suspect]
     Indication: RHEUMATOID ARTHRITIS
     Route: 058
     Dates: start: 20050421
  2. METHOTREXATE [Concomitant]
     Route: 048
     Dates: start: 20050101
  3. VALIUM [Concomitant]
     Route: 048
     Dates: start: 20050118
  4. LEVOXYL [Concomitant]

REACTIONS (2)
  - KIDNEY INFECTION [None]
  - REFLUX NEPHROPATHY [None]
